FAERS Safety Report 9523258 (Version 1)
Quarter: 2013Q3

REPORT INFORMATION
  Report Type: Spontaneous
  Country: US (occurrence: US)
  Receive Date: 20130913
  Receipt Date: 20130913
  Transmission Date: 20140515
  Serious: No
  Sender: FDA-Public Use
  Company Number: US-BAYER-2013-111169

PATIENT
  Age: 52 Year
  Sex: Male
  Weight: 82.54 kg

DRUGS (2)
  1. ALEVE CAPLET [Suspect]
     Indication: ANALGESIC THERAPY
     Dosage: 1 DF, ONCE
     Route: 048
     Dates: start: 20130906, end: 20130906
  2. PRILOSEC [Concomitant]

REACTIONS (1)
  - Abdominal discomfort [Recovered/Resolved]
